FAERS Safety Report 7526669-0 (Version None)
Quarter: 2011Q2

REPORT INFORMATION
  Report Type: 
  Country: None (occurrence: None)
  Receive Date: 20110606
  Receipt Date: 20110601
  Transmission Date: 20111010
  Serious: Yes (Life-Threatening, Hospitalization)
  Sender: FDA-Public Use
  Company Number: BR-PFIZER INC-2011118705

PATIENT
  Age: 65 Year

DRUGS (4)
  1. LYRICA [Suspect]
     Indication: BIPOLAR DISORDER
     Dosage: UNK
     Route: 048
     Dates: start: 20110501
  2. OLCADIL [Concomitant]
     Dosage: UNK
  3. LYRICA [Suspect]
     Indication: DEPRESSION
  4. LEXAPRO [Concomitant]
     Dosage: 10 MG, UNK

REACTIONS (3)
  - RENAL FAILURE [None]
  - SINUS BRADYCARDIA [None]
  - THROMBOSIS [None]
